FAERS Safety Report 19943193 (Version 4)
Quarter: 2022Q2

REPORT INFORMATION
  Report Type: Spontaneous
  Country: US (occurrence: US)
  Receive Date: 20211011
  Receipt Date: 20220407
  Transmission Date: 20220721
  Serious: Yes (Hospitalization, Other)
  Sender: FDA-Public Use
  Company Number: US-NOVARTISPH-NVSC2021US229017

PATIENT
  Age: 47 Year
  Sex: Female

DRUGS (4)
  1. GILENYA [Suspect]
     Active Substance: FINGOLIMOD HYDROCHLORIDE
     Indication: Multiple sclerosis
     Dosage: 0.5 MG, QD
     Route: 048
     Dates: start: 2015, end: 201907
  2. ETHYLOESTRENOL [Concomitant]
     Indication: Product used for unknown indication
     Dosage: UNK UNK, QD
     Route: 065
  3. LISINOPRIL [Concomitant]
     Active Substance: LISINOPRIL
     Indication: Product used for unknown indication
     Dosage: 5 MG, QD
     Route: 048
  4. CALCIUM\CHOLECALCIFEROL [Concomitant]
     Active Substance: CALCIUM\CHOLECALCIFEROL
     Indication: Product used for unknown indication
     Dosage: UNK, QD
     Route: 048

REACTIONS (15)
  - Progressive multifocal leukoencephalopathy [Recovered/Resolved with Sequelae]
  - Dysarthria [Unknown]
  - Personality change [Unknown]
  - Hemiparesis [Unknown]
  - Asthenia [Unknown]
  - Brain stem syndrome [Unknown]
  - Nervous system disorder [Unknown]
  - Cognitive disorder [Recovered/Resolved with Sequelae]
  - Tremor [Unknown]
  - Confusional state [Unknown]
  - Coordination abnormal [Unknown]
  - Aphasia [Unknown]
  - Micturition urgency [Unknown]
  - Fall [Unknown]
  - Limb discomfort [Unknown]

NARRATIVE: CASE EVENT DATE: 20190717
